FAERS Safety Report 11906654 (Version 1)
Quarter: 2016Q1

REPORT INFORMATION
  Report Type: Spontaneous
  Country: NO (occurrence: NO)
  Receive Date: 20160111
  Receipt Date: 20160111
  Transmission Date: 20160526
  Serious: Yes (Disabling, Other)
  Sender: FDA-Public Use
  Company Number: NO-GLAXOSMITHKLINE-NO2016GSK002985

PATIENT
  Age: 1 Month
  Sex: Male

DRUGS (1)
  1. NEOTIGASON [Suspect]
     Active Substance: ACITRETIN
     Indication: HARLEQUIN FOETUS
     Dosage: UNK
     Route: 048
     Dates: start: 20150918, end: 20151029

REACTIONS (4)
  - Osteosclerosis [Not Recovered/Not Resolved]
  - Bone callus excessive [Not Recovered/Not Resolved]
  - Osteopenia [Not Recovered/Not Resolved]
  - Multiple fractures [Not Recovered/Not Resolved]

NARRATIVE: CASE EVENT DATE: 20151029
